FAERS Safety Report 9033639 (Version 1)
Quarter: 2013Q1

REPORT INFORMATION
  Report Type: Spontaneous
  Country: US (occurrence: US)
  Receive Date: 20130128
  Receipt Date: 20130128
  Transmission Date: 20140127
  Serious: Yes (Other)
  Sender: FDA-Public Use
  Company Number: US-AMGEN-USASP2012080262

PATIENT
  Age: 44 Year
  Sex: Female

DRUGS (1)
  1. ENBREL [Suspect]
     Indication: RHEUMATOID ARTHRITIS
     Dosage: 50 MG, EVERY 8-9 DAYS
     Dates: start: 20120302

REACTIONS (9)
  - Cardiac flutter [Recovered/Resolved]
  - Dizziness [Recovered/Resolved]
  - Blood pressure increased [Recovered/Resolved]
  - Blister [Not Recovered/Not Resolved]
  - Skin discolouration [Not Recovered/Not Resolved]
  - Rash [Recovered/Resolved]
  - Oedema peripheral [Not Recovered/Not Resolved]
  - Pain in extremity [Not Recovered/Not Resolved]
  - Burning sensation [Not Recovered/Not Resolved]
